FAERS Safety Report 5427631-4 (Version None)
Quarter: 2007Q3

REPORT INFORMATION
  Report Type: 
  Country: None (occurrence: None)
  Receive Date: 20070823
  Receipt Date: 20070808
  Transmission Date: 20080115
  Serious: Yes (Hospitalization)
  Sender: FDA-Public Use
  Company Number: DSA_30405_2007

PATIENT
  Sex: Female

DRUGS (2)
  1. LORAZEPAM [Suspect]
     Dosage: (6 MG 1X MORE THAN PRESCRIBED ORAL)
     Route: 048
     Dates: start: 20070808, end: 20070808
  2. MADOPAR /00349201/ (MADOPAR - BENSERAZIDE HYDROCHLORIDE/LEVODOPA) [Suspect]
     Dosage: (50 DF 1X MORE THAN PRESCRIBED ORAL)
     Route: 048
     Dates: start: 20070808, end: 20070808

REACTIONS (1)
  - ACCIDENTAL OVERDOSE [None]
